FAERS Safety Report 6634561-9 (Version None)
Quarter: 2010Q1

REPORT INFORMATION
  Report Type: 
  Country: None (occurrence: None)
  Receive Date: 20100315
  Receipt Date: 20100310
  Transmission Date: 20100710
  Serious: Yes (Other)
  Sender: FDA-Public Use
  Company Number: US-RB-021339-09

PATIENT
  Age: 32 Year
  Sex: Female

DRUGS (1)
  1. SUBUTEX [Suspect]
     Dosage: DOSING DETAILS UNKNOWN
     Route: 060
     Dates: end: 20100201

REACTIONS (3)
  - ANTEPARTUM HAEMORRHAGE [None]
  - DRUG EXPOSURE DURING PREGNANCY [None]
  - THROMBOSIS [None]
